FAERS Safety Report 25511792 (Version 1)
Quarter: 2025Q3

REPORT INFORMATION
  Report Type: Spontaneous
  Country: US (occurrence: US)
  Receive Date: 20250703
  Receipt Date: 20250703
  Transmission Date: 20251021
  Serious: No
  Sender: RADIUS PHARM
  Company Number: US-RADIUS HEALTH INC.-2024US006779

PATIENT
  Sex: Female

DRUGS (1)
  1. TYMLOS [Suspect]
     Active Substance: ABALOPARATIDE
     Indication: Senile osteoporosis
     Route: 058
     Dates: start: 20240807

REACTIONS (9)
  - Injection site urticaria [Recovered/Resolved]
  - Urticaria [Recovered/Resolved]
  - Fatigue [Recovering/Resolving]
  - Eczema [None]
  - Skin discolouration [Unknown]
  - Heart rate increased [Recovering/Resolving]
  - Injection site haemorrhage [Unknown]
  - Product administered at inappropriate site [Unknown]
  - Product use complaint [Unknown]
